FAERS Safety Report 8885624 (Version 1)
Quarter: 2012Q4

REPORT INFORMATION
  Report Type: 
  Country: DE (occurrence: DE)
  Receive Date: 20121102
  Receipt Date: 20121102
  Transmission Date: 20130627
  Serious: Yes (Other)
  Sender: FDA-Public Use
  Company Number: DE-AMGEN-DEUSP2012069668

PATIENT
  Age: 69 Year
  Sex: Female

DRUGS (3)
  1. ENBREL [Suspect]
     Indication: RHEUMATOID ARTHRITIS
     Dosage: 50 mg/week
     Dates: start: 20090722, end: 20120813
  2. ARAVA [Concomitant]
     Dosage: 10 mg, UNK
  3. MTX                                /00113802/ [Concomitant]
     Dosage: 7.5 mg, UNK

REACTIONS (2)
  - Tooth infection [Unknown]
  - Osteomyelitis [Unknown]
